FAERS Safety Report 9540174 (Version 1)
Quarter: 2013Q2

REPORT INFORMATION
  Report Type: Spontaneous
  Country: US (occurrence: None)
  Receive Date: 20130524
  Receipt Date: 20130524
  Transmission Date: 20140414
  Serious: Yes (Other)
  Sender: FDA-Public Use
  Company Number: PHEH2013US004562

PATIENT
  Age: 26 Year
  Sex: Male
  Weight: 122.4 kg

DRUGS (1)
  1. GILENYA (FINGOLIMOD) CAPSULE, 0.5MG [Suspect]
     Indication: MULTIPLE SCLEROSIS
     Route: 048

REACTIONS (4)
  - Pain in extremity [None]
  - Abdominal pain upper [None]
  - Asthenia [None]
  - Headache [None]
